FAERS Safety Report 4412622-2 (Version None)
Quarter: 2004Q2

REPORT INFORMATION
  Report Type: 
  Country: None (occurrence: None)
  Receive Date: 20040630
  Receipt Date: 20040302
  Transmission Date: 20050107
  Serious: No
  Sender: FDA-Public Use
  Company Number: 04P-163-0251934-00

PATIENT
  Age: 53 Year
  Sex: Female

DRUGS (7)
  1. HUMIRA [Suspect]
     Indication: RHEUMATOID ARTHRITIS
     Dosage: 40 MG 1 IN 2 WK SUBCUTANEOUS
     Route: 058
     Dates: start: 20040210
  2. PREDNISONE [Concomitant]
  3. LEVOTHYROXINE SODIUM [Concomitant]
  4. TENORMIN [Concomitant]
  5. STUDY DRUG: COX2 OR VOLTAREN [Concomitant]
  6. ZANAFLEX [Concomitant]
  7. ACETAMINOPHEN [Concomitant]

REACTIONS (1)
  - DRUG EFFECT DECREASED [None]
